FAERS Safety Report 15330599 (Version 2)
Quarter: 2018Q3

REPORT INFORMATION
  Report Type: Spontaneous
  Country: RO (occurrence: RO)
  Receive Date: 20180829
  Receipt Date: 20180926
  Transmission Date: 20181010
  Serious: Yes (Hospitalization, Other)
  Sender: FDA-Public Use
  Company Number: RO-PFIZER INC-2018346551

PATIENT
  Age: 53 Year
  Sex: Female

DRUGS (2)
  1. VANCOMYCIN [Suspect]
     Active Substance: VANCOMYCIN
     Indication: ANTIBIOTIC THERAPY
     Dosage: UNK
  2. CEFTRIAXONE SODIUM. [Suspect]
     Active Substance: CEFTRIAXONE SODIUM
     Indication: ANTIBIOTIC THERAPY
     Dosage: UNK

REACTIONS (8)
  - Thrombocytopenia [Unknown]
  - Haemodynamic instability [Unknown]
  - Altered state of consciousness [Unknown]
  - Coma [Unknown]
  - Anaemia [Unknown]
  - Leukocytosis [Unknown]
  - Hepatorenal syndrome [Unknown]
  - Anuria [Unknown]
